FAERS Safety Report 6899638-1 (Version None)
Quarter: 2010Q3

REPORT INFORMATION
  Report Type: 
  Country: None (occurrence: None)
  Receive Date: 20100708
  Receipt Date: 20090723
  Transmission Date: 20110219
  Serious: Yes (Other)
  Sender: FDA-Public Use
  Company Number: 2009236439

PATIENT
  Age: 50 Year
  Sex: Female

DRUGS (2)
  1. CHANTIX [Suspect]
  2. AMBIEN [Concomitant]

REACTIONS (1)
  - SUICIDAL IDEATION [None]
